FAERS Safety Report 8294824-0 (Version None)
Quarter: 2012Q2

REPORT INFORMATION
  Report Type: 
  Country: None (occurrence: None)
  Receive Date: 20120418
  Receipt Date: 20120413
  Transmission Date: 20120825
  Serious: Yes (Hospitalization)
  Sender: FDA-Public Use
  Company Number: PHHY2012US031403

PATIENT

DRUGS (22)
  1. OMEPRAZOLE [Concomitant]
     Dosage: 40 MG, QD
     Route: 048
     Dates: start: 19980101
  2. GABAPENTIN [Concomitant]
     Indication: INTERVERTEBRAL DISC DEGENERATION
     Dosage: 600 MG, QD
     Route: 048
     Dates: start: 20080101
  3. PHENERGAN HCL [Concomitant]
     Indication: NAUSEA
     Dosage: 25 MG, UNK
     Route: 048
     Dates: start: 20000101
  4. SYSTANE (PROPYLENE GLYCOL/MACROGOL) [Concomitant]
     Indication: DRY EYE
     Dosage: 1 DF, QHS
     Dates: start: 20110101
  5. FISH OIL [Concomitant]
     Indication: SUPPLEMENTATION THERAPY
     Dosage: 1 DF, QD, 1 TAB
     Route: 048
     Dates: start: 19970101
  6. GILENYA [Suspect]
     Indication: MULTIPLE SCLEROSIS
     Dosage: 0.5 MG, QD
     Route: 048
     Dates: start: 20111116, end: 20120209
  7. PROVENTIL-HFA [Concomitant]
     Indication: ASTHMA
     Dosage: UNK,2 PUFFS
     Dates: start: 20000101
  8. SYNTHROID [Concomitant]
     Indication: HYPOTHYROIDISM
     Dosage: 50 UG, QD
     Route: 048
     Dates: start: 20070101
  9. BACLOFEN [Concomitant]
     Dosage: 20 MG, QID
     Route: 048
     Dates: start: 19920101
  10. ESTRADIOL [Concomitant]
     Indication: HORMONE REPLACEMENT THERAPY
     Dosage: 2 MG, QD
     Route: 048
     Dates: start: 19950101
  11. AMBIEN CR [Concomitant]
     Indication: INSOMNIA
     Dosage: 12.5 MG, QD
     Route: 048
     Dates: start: 20050101
  12. FLAXSEED OIL [Concomitant]
     Indication: SUPPLEMENTATION THERAPY
     Dosage: 1 DF, QD, 1 TAB
     Route: 048
     Dates: start: 19970101
  13. GILENYA [Suspect]
     Dosage: 0.5 MG, QD
     Route: 048
     Dates: start: 20120310
  14. SINGULAIR [Concomitant]
     Indication: ASTHMA
     Dosage: 10 MG, QD
     Route: 048
     Dates: start: 19980101
  15. LASIX [Concomitant]
     Indication: OEDEMA PERIPHERAL
     Dosage: 20 MG, QD
     Route: 048
     Dates: start: 20000101
  16. XANAX [Concomitant]
     Indication: ANXIETY
     Dosage: 1 MG, TID
     Route: 048
     Dates: start: 20000101
  17. POTASSIUM CHLORIDE [Concomitant]
     Indication: SUPPLEMENTATION THERAPY
     Dosage: 10 UG, QD
     Route: 048
     Dates: start: 20000101
  18. DILTIAZEM HCL [Concomitant]
     Indication: HYPERTENSION
     Dosage: 20 MG, BID
     Route: 048
     Dates: start: 19920101
  19. PERCOCET [Concomitant]
     Indication: ARTHRALGIA
     Dosage: 10 MG, UNK
     Route: 048
     Dates: start: 20080101
  20. HYDROXYZINE HYDROCHLORIDE [Concomitant]
     Indication: ANXIETY
     Dosage: 10 MG, QD
     Route: 048
     Dates: start: 20070101
  21. CALCIUM CARBONATE [Concomitant]
     Indication: SUPPLEMENTATION THERAPY
     Dosage: 1200 MG, QD
     Route: 048
     Dates: start: 19970101
  22. PROVIGIL [Concomitant]
     Indication: FATIGUE
     Dosage: 20 MG, BID
     Route: 048
     Dates: start: 20030101

REACTIONS (14)
  - RED BLOOD CELLS URINE POSITIVE [None]
  - WHITE BLOOD CELLS URINE POSITIVE [None]
  - SYNCOPE [None]
  - PROTEIN URINE PRESENT [None]
  - LYMPHOCYTE COUNT DECREASED [None]
  - ASTHENIA [None]
  - URINARY TRACT INFECTION [None]
  - BLOOD URINE PRESENT [None]
  - GAIT DISTURBANCE [None]
  - MULTIPLE SCLEROSIS RELAPSE [None]
  - MUSCULAR WEAKNESS [None]
  - FATIGUE [None]
  - URINE LEUKOCYTE ESTERASE POSITIVE [None]
  - RASH [None]
